FAERS Safety Report 5133797-6 (Version None)
Quarter: 2006Q4

REPORT INFORMATION
  Report Type: 
  Country: None (occurrence: None)
  Receive Date: 20061018
  Receipt Date: 20061010
  Transmission Date: 20070319
  Serious: Yes (Other)
  Sender: FDA-Public Use
  Company Number: 06-0126NI

PATIENT
  Sex: Male

DRUGS (14)
  1. NITROLINGUAL PUMPSPRAY [Suspect]
     Indication: ANGINA PECTORIS
     Dosage: 5 SPRAYS, SUBLINGUAL
     Route: 060
  2. RANEXA [Suspect]
     Indication: ANGINA PECTORIS
     Dosage: 500 MG, PO
     Route: 048
  3. INDERALL [Concomitant]
  4. FELODIPINE [Concomitant]
  5. UNIVASC [Concomitant]
  6. HIZAR [Concomitant]
  7. ZOLOFT [Concomitant]
  8. COZAAR [Concomitant]
  9. ACIPHEX [Concomitant]
  10. CLIBURIDE WITH METAFORM [Concomitant]
  11. NPH INSULIN [Concomitant]
  12. TRICOR [Concomitant]
  13. ASPIRIN [Concomitant]
  14. MULTI-VITAMIN [Concomitant]

REACTIONS (5)
  - CORONARY ARTERY DISEASE [None]
  - DRUG INEFFECTIVE [None]
  - MYOCARDIAL INFARCTION [None]
  - PHARMACEUTICAL PRODUCT COMPLAINT [None]
  - REFUSAL OF TREATMENT BY PATIENT [None]
